FAERS Safety Report 7642911-X (Version None)
Quarter: 2011Q3

REPORT INFORMATION
  Report Type: 
  Country: None (occurrence: None)
  Receive Date: 20110728
  Receipt Date: 20110720
  Transmission Date: 20111222
  Serious: Yes (Other)
  Sender: FDA-Public Use
  Company Number: PHEH2006US00792

PATIENT
  Sex: Female
  Weight: 68.027 kg

DRUGS (31)
  1. PHENERGAN [Concomitant]
  2. EPIRUBICIN [Concomitant]
     Dosage: WEEKLY
     Dates: start: 20060802
  3. NEUPOGEN [Concomitant]
     Dosage: 2 OUT OF 3 DAYS
  4. FEMARA [Suspect]
     Dosage: 2.5 MG, QD
  5. TAXOL [Concomitant]
     Route: 042
     Dates: start: 20051130
  6. ACTOS [Concomitant]
     Indication: DIABETES MELLITUS
  7. ZOMETA [Suspect]
     Dosage: 4 MG, QD
     Dates: end: 20051007
  8. AMOXICILLIN [Concomitant]
     Dates: start: 20050325
  9. GEMZAR [Concomitant]
     Dosage: 1750-1780MG
     Route: 042
     Dates: start: 20050701, end: 20051021
  10. MOTRIN [Concomitant]
     Dosage: 600 MG Q6HRS PRN
  11. MEGACE [Concomitant]
     Dosage: 80 MG, BID
  12. CELEXA [Concomitant]
  13. MORPHINE [Concomitant]
  14. GLUCOPHAGE [Concomitant]
  15. ETOPOSIDE [Concomitant]
     Dosage: 50 MG, QD FOR 14 DAYS
  16. AVASTIN [Concomitant]
     Dosage: 10 MG PER KG
     Dates: start: 20051130
  17. ZOMETA [Suspect]
     Dosage: 4 MG, QD
     Dates: end: 20040422
  18. TAXOTERE [Concomitant]
     Dosage: 52 MG, QW
     Route: 042
     Dates: start: 20040830, end: 20041019
  19. KYTRIL [Concomitant]
     Dates: start: 20050405
  20. SYNTHROID [Concomitant]
  21. AMBIEN [Concomitant]
  22. ALTACE [Concomitant]
  23. MINERAL OIL EMULSION [Concomitant]
     Indication: CONSTIPATION
  24. DECADRON [Concomitant]
  25. XELODA [Concomitant]
  26. NAVELBINE [Concomitant]
  27. ABRAXANE [Concomitant]
     Dosage: 70 MG PER METER SQUARED
  28. GEMZAR [Concomitant]
     Dosage: 1750-1790MG
     Route: 042
     Dates: start: 20050128, end: 20050617
  29. CLEOCIN HYDROCHLORIDE [Concomitant]
     Dosage: 300 MG, QID
     Dates: start: 20050901
  30. ARANESP [Concomitant]
     Indication: ANAEMIA
     Dosage: EVERY TWO WEEKS
  31. MILK OF MAGNESIA TAB [Concomitant]

REACTIONS (37)
  - METASTASES TO BONE [None]
  - METASTASES TO LUNG [None]
  - MUCOSAL INFLAMMATION [None]
  - LICHEN PLANUS [None]
  - TOOTH ABSCESS [None]
  - METASTASES TO LYMPH NODES [None]
  - NEUROPATHY PERIPHERAL [None]
  - PARAESTHESIA [None]
  - LYMPHADENOPATHY [None]
  - BONE LESION [None]
  - BONE EROSION [None]
  - HIP FRACTURE [None]
  - FUNGAL INFECTION [None]
  - IMPAIRED HEALING [None]
  - BREATH ODOUR [None]
  - ASPARTATE AMINOTRANSFERASE INCREASED [None]
  - ALANINE AMINOTRANSFERASE INCREASED [None]
  - LUNG NEOPLASM [None]
  - ABSCESS [None]
  - WOUND SECRETION [None]
  - GINGIVAL PAIN [None]
  - HYPOAESTHESIA [None]
  - CONSTIPATION [None]
  - BONE DISORDER [None]
  - GINGIVAL DISORDER [None]
  - PATHOLOGICAL FRACTURE [None]
  - METASTASES TO LIVER [None]
  - METASTASES TO CENTRAL NERVOUS SYSTEM [None]
  - TACHYCARDIA [None]
  - ORAL PAIN [None]
  - HEPATIC STEATOSIS [None]
  - INTERVERTEBRAL DISC DEGENERATION [None]
  - INTERVERTEBRAL DISC PROTRUSION [None]
  - HEPATIC CYST [None]
  - OSTEONECROSIS OF JAW [None]
  - SWELLING [None]
  - IMMUNE SYSTEM DISORDER [None]
